FAERS Safety Report 10102773 (Version 1)
Quarter: 2014Q2

REPORT INFORMATION
  Report Type: Spontaneous
  Country: GB (occurrence: GB)
  Receive Date: 20140424
  Receipt Date: 20140424
  Transmission Date: 20141212
  Serious: Yes (Other)
  Sender: FDA-Public Use
  Company Number: GB-TEVA-475200ISR

PATIENT
  Age: 67 Year
  Sex: Female
  Weight: 82.7 kg

DRUGS (2)
  1. BISOPROLOL [Suspect]
     Indication: HYPERTENSION
     Dosage: 3.75 MILLIGRAM DAILY; STARTED AROUND THE END OF DECEMBER 2013
     Dates: start: 201312
  2. LEVOTHYROXINE [Concomitant]
     Indication: HYPOTHYROIDISM
     Dosage: STARTED YEARS AGO

REACTIONS (6)
  - Pain [Recovered/Resolved]
  - Hypoaesthesia [Recovered/Resolved]
  - Pain in extremity [Recovered/Resolved]
  - Pruritus [Recovered/Resolved]
  - Eye pruritus [Recovered/Resolved]
  - Pallor [Recovered/Resolved]
